FAERS Safety Report 5571365-2 (Version None)
Quarter: 2007Q4

REPORT INFORMATION
  Report Type: 
  Country: None (occurrence: None)
  Receive Date: 20071221
  Receipt Date: 20070823
  Transmission Date: 20080405
  Serious: No
  Sender: FDA-Public Use
  Company Number: A0676068A

PATIENT
  Age: 55 Year
  Sex: Male

DRUGS (4)
  1. FLUTICASONE PROPIONATE [Suspect]
     Indication: VASOMOTOR RHINITIS
     Dosage: 2SPR TWICE PER DAY
     Route: 045
     Dates: start: 20070423
  2. SERAX [Concomitant]
  3. DIAZEPAM [Concomitant]
  4. OXAZEPAM [Concomitant]

REACTIONS (2)
  - DRUG INEFFECTIVE [None]
  - NASAL CONGESTION [None]
